FAERS Safety Report 18763705 (Version 1)
Quarter: 2021Q1

REPORT INFORMATION
  Report Type: Spontaneous
  Country: US (occurrence: US)
  Receive Date: 20210120
  Receipt Date: 20210120
  Transmission Date: 20210419
  Serious: Yes (Other)
  Sender: FDA-Public Use
  Company Number: US-BAYER-2021-025575

PATIENT
  Age: 69 Year
  Sex: Male

DRUGS (1)
  1. MACROGOL 3350 [Suspect]
     Active Substance: POLYETHYLENE GLYCOL 3350

REACTIONS (4)
  - Acute kidney injury [None]
  - Hyponatraemia [None]
  - Hyperkalaemia [None]
  - Incorrect dose administered [None]
